FAERS Safety Report 16545921 (Version 4)
Quarter: 2019Q3

REPORT INFORMATION
  Report Type: Spontaneous
  Country: AT (occurrence: AT)
  Receive Date: 20190709
  Receipt Date: 20190731
  Transmission Date: 20191004
  Serious: Yes (Other)
  Sender: FDA-Public Use
  Company Number: AT-JNJFOC-20190632300

PATIENT
  Age: 50 Year
  Sex: Female

DRUGS (16)
  1. SEROQUEL [Suspect]
     Active Substance: QUETIAPINE FUMARATE
     Dates: start: 2014, end: 201905
  2. LEPONEX [Suspect]
     Active Substance: CLOZAPINE
     Route: 065
     Dates: start: 20190508, end: 20190512
  3. PREGABALIN. [Suspect]
     Active Substance: PREGABALIN
     Indication: PRODUCT USED FOR UNKNOWN INDICATION
     Route: 065
     Dates: start: 2018, end: 20190428
  4. PREGABALIN. [Suspect]
     Active Substance: PREGABALIN
     Route: 065
     Dates: start: 20190429, end: 20190512
  5. LEPONEX [Suspect]
     Active Substance: CLOZAPINE
     Route: 065
     Dates: start: 20190506, end: 20190506
  6. LEPONEX [Suspect]
     Active Substance: CLOZAPINE
     Dosage: 75-100 MG
     Route: 065
     Dates: start: 20190429, end: 20190505
  7. RISPERDAL [Suspect]
     Active Substance: RISPERIDONE
     Dosage: 2-4 MG
     Route: 048
     Dates: start: 20190424, end: 20190521
  8. PREGABALIN. [Suspect]
     Active Substance: PREGABALIN
     Route: 065
     Dates: start: 20190513
  9. AKINETON [Suspect]
     Active Substance: BIPERIDEN HYDROCHLORIDE
     Indication: PRODUCT USED FOR UNKNOWN INDICATION
     Route: 065
     Dates: start: 2014, end: 20190506
  10. DELPRAL [Suspect]
     Active Substance: TIAPRIDE HYDROCHLORIDE
     Indication: SCHIZOPHRENIA
     Route: 065
     Dates: start: 20190419, end: 20190513
  11. RISPERDAL [Suspect]
     Active Substance: RISPERIDONE
     Indication: SCHIZOPHRENIA
     Route: 048
     Dates: start: 2018, end: 20190423
  12. LEPONEX [Suspect]
     Active Substance: CLOZAPINE
     Indication: SCHIZOPHRENIA
     Dosage: 25-50 MG
     Route: 065
     Dates: start: 20190423, end: 20190428
  13. LEPONEX [Suspect]
     Active Substance: CLOZAPINE
     Route: 065
     Dates: start: 20190503, end: 20190505
  14. INDERAL [Suspect]
     Active Substance: PROPRANOLOL HYDROCHLORIDE
     Indication: SCHIZOPHRENIA
     Dosage: 30-40 MILLIGRAM
     Route: 065
     Dates: start: 2018, end: 20190512
  15. AGLANDIN [Suspect]
     Active Substance: TAMSULOSIN HYDROCHLORIDE
     Indication: PRODUCT USED FOR UNKNOWN INDICATION
     Dates: start: 2014
  16. THYREX [Concomitant]
     Active Substance: LEVOTHYROXINE SODIUM
     Indication: PRODUCT USED FOR UNKNOWN INDICATION
     Route: 065
     Dates: start: 2014

REACTIONS (3)
  - Delirium [Recovered/Resolved]
  - Pneumonia [Unknown]
  - Dyskinesia [Recovering/Resolving]

NARRATIVE: CASE EVENT DATE: 20190505
